FAERS Safety Report 6669649-X (Version None)
Quarter: 2010Q2

REPORT INFORMATION
  Report Type: 
  Country: None (occurrence: None)
  Receive Date: 20100406
  Receipt Date: 20100326
  Transmission Date: 20101027
  Serious: Yes (Hospitalization, Other)
  Sender: FDA-Public Use
  Company Number: US-PFIZER INC-2010022965

PATIENT
  Sex: Male
  Weight: 104.31 kg

DRUGS (7)
  1. LIPITOR [Suspect]
     Indication: BLOOD CHOLESTEROL INCREASED
     Dosage: 80 MG, 1X/DAY
     Route: 048
     Dates: start: 20091218, end: 20100201
  2. ATENOLOL [Concomitant]
     Dosage: UNK
  3. ACCUPRIL [Concomitant]
     Dosage: UNK
  4. EFFEXOR [Concomitant]
     Dosage: UNK
  5. PLAVIX [Concomitant]
     Dosage: UNK
  6. ALISKIREN [Concomitant]
     Dosage: UNK
  7. AMLODIPINE BESYLATE [Concomitant]
     Dosage: UNK

REACTIONS (4)
  - ASTHENIA [None]
  - CARDIAC ENZYMES INCREASED [None]
  - MUSCULAR WEAKNESS [None]
  - MYALGIA [None]
